FAERS Safety Report 7795577-2 (Version None)
Quarter: 2011Q4

REPORT INFORMATION
  Report Type: 
  Country: None (occurrence: None)
  Receive Date: 20111004
  Receipt Date: 20110930
  Transmission Date: 20120403
  Serious: Yes (Death, Hospitalization)
  Sender: FDA-Public Use
  Company Number: US-GLAXOSMITHKLINE-A0884522A

PATIENT
  Age: 77 Year
  Sex: Female

DRUGS (8)
  1. LANOXIN [Concomitant]
  2. OXYBUTYNIN [Concomitant]
  3. AVANDIA [Suspect]
     Indication: DIABETES MELLITUS
     Dosage: 8MG PER DAY
     Route: 048
     Dates: start: 20011005
  4. HYDROCODONE [Concomitant]
  5. PRINIVIL [Concomitant]
  6. AMITRIPTYLINE HCL [Concomitant]
  7. GLUCOTROL [Concomitant]
  8. METFORMIN HCL [Concomitant]

REACTIONS (5)
  - CORONARY ARTERY DISEASE [None]
  - CARDIAC FAILURE [None]
  - RESPIRATORY FAILURE [None]
  - MYOCARDIAL INFARCTION [None]
  - CARDIAC FAILURE CONGESTIVE [None]
